FAERS Safety Report 5129278-6 (Version None)
Quarter: 2006Q4

REPORT INFORMATION
  Report Type: 
  Country: None (occurrence: None)
  Receive Date: 20061011
  Receipt Date: 20061002
  Transmission Date: 20070319
  Serious: Yes (Hospitalization)
  Sender: FDA-Public Use
  Company Number: GBWYE093602OCT06

PATIENT
  Age: 51 Year
  Sex: Male

DRUGS (18)
  1. RAPAMUNE [Suspect]
     Indication: IMMUNOSUPPRESSION
     Dosage: 2 MG 1X PER 1 DAY, ORAL
     Route: 048
     Dates: start: 20060808, end: 20060828
  2. TACROLIMUS (TACROLIMUS,  , 0) [Suspect]
     Indication: IMMUNOSUPPRESSION
     Dosage: ORAL
     Route: 048
     Dates: start: 20040101
  3. ALENDRONATE SODIUM (ALENDRONAE SODIUM) [Concomitant]
  4. CALCICHEW (CALCIUM CARBONATE) [Concomitant]
  5. CALCIUM RESONIUM (CALCIUM POLYSTYRENE SULFONATE) [Concomitant]
  6. CODEINE SUL TAB [Concomitant]
  7. CREON [Concomitant]
  8. FLUCONAZOLE [Concomitant]
  9. GABAPENTIN [Concomitant]
  10. HYDROCORTISONE [Concomitant]
  11. LOPERAMIDE HCL [Concomitant]
  12. METRONIDAZOLE [Concomitant]
  13. MYCOPHENOLAE MOFETIL (MYCOPHENOLATE MOFETIL) [Concomitant]
  14. NOVOMIX (INSULIN ASPART) [Concomitant]
  15. OMEPRAZOLE [Concomitant]
  16. ACETAMINOPHEN [Concomitant]
  17. VALGANCICLOVIR HCL [Concomitant]
  18. WARFARIN SODIUM [Concomitant]

REACTIONS (6)
  - ALANINE AMINOTRANSFERASE INCREASED [None]
  - BLOOD ALKALINE PHOSPHATASE INCREASED [None]
  - HYPERKALAEMIA [None]
  - INTERNATIONAL NORMALISED RATIO INCREASED [None]
  - LEUKOENCEPHALOPATHY [None]
  - OPTIC ISCHAEMIC NEUROPATHY [None]
